FAERS Safety Report 15603292 (Version 1)
Quarter: 2018Q4

REPORT INFORMATION
  Report Type: Spontaneous
  Country: US (occurrence: US)
  Receive Date: 20181109
  Receipt Date: 20181109
  Transmission Date: 20190205
  Serious: No
  Sender: FDA-Public Use
  Company Number: None

PATIENT
  Age: 13 Year
  Sex: Female

DRUGS (1)
  1. AFREZZA [Suspect]
     Active Substance: INSULIN HUMAN
     Indication: WOLFRAM SYNDROME
     Dosage: ?          OTHER ROUTE:INHALED?
     Route: 055

REACTIONS (3)
  - Drug effect decreased [None]
  - Product lot number issue [None]
  - Product quality issue [None]

NARRATIVE: CASE EVENT DATE: 20181108
